FAERS Safety Report 5961679-6 (Version None)
Quarter: 2008Q4

REPORT INFORMATION
  Report Type: 
  Country: None (occurrence: None)
  Receive Date: 20081119
  Receipt Date: 20081104
  Transmission Date: 20090506
  Serious: Yes (Life-Threatening, Hospitalization)
  Sender: FDA-Public Use
  Company Number: ADE2008-0371

PATIENT
  Age: 23 Year
  Sex: Female

DRUGS (3)
  1. CITALOPRAM HYDROBROMIDE [Suspect]
     Dosage: 220 MG X 1 - PO
     Route: 048
  2. LAMOTRIGINE [Suspect]
     Dosage: 9.2 G X 1 - PO
     Route: 048
  3. CHLORPHENTERMINE 65MG TAB [Suspect]
     Dosage: 56 MG X 1 - PO
     Route: 048

REACTIONS (13)
  - AGITATION [None]
  - APPARENT LIFE THREATENING EVENT [None]
  - DEPRESSED LEVEL OF CONSCIOUSNESS [None]
  - ELECTROCARDIOGRAM ABNORMAL [None]
  - ELECTROCARDIOGRAM QRS COMPLEX PROLONGED [None]
  - ELECTROCARDIOGRAM QT PROLONGED [None]
  - HEART RATE INCREASED [None]
  - INTENTIONAL OVERDOSE [None]
  - METABOLIC ACIDOSIS [None]
  - NYSTAGMUS [None]
  - RESPIRATORY RATE INCREASED [None]
  - SINUS TACHYCARDIA [None]
  - TREMOR [None]
